FAERS Safety Report 17296483 (Version 3)
Quarter: 2020Q2

REPORT INFORMATION
  Report Type: Report from Study
  Country: None (occurrence: US)
  Receive Date: 20200122
  Receipt Date: 20200623
  Transmission Date: 20200713
  Serious: Yes (Other)
  Sender: FDA-Public Use
  Company Number: US-ABBVIE-19K-163-2899875-00

PATIENT
  Sex: Male

DRUGS (2)
  1. HUMIRA [Suspect]
     Active Substance: ADALIMUMAB
     Indication: COLITIS ULCERATIVE
     Route: 058
  2. HUMIRA [Suspect]
     Active Substance: ADALIMUMAB
     Route: 058
     Dates: start: 20200512

REACTIONS (5)
  - Rotator cuff syndrome [Recovered/Resolved]
  - Respiratory disorder [Unknown]
  - Skin cancer [Recovering/Resolving]
  - Nasopharyngitis [Unknown]
  - Impaired healing [Not Recovered/Not Resolved]
